FAERS Safety Report 26009170 (Version 2)
Quarter: 2025Q4

REPORT INFORMATION
  Report Type: Spontaneous
  Country: US (occurrence: US)
  Receive Date: 20251107
  Receipt Date: 20251109
  Transmission Date: 20260117
  Serious: Yes (Hospitalization, Other)
  Sender: SANOFI AVENTIS
  Company Number: US-SA-2025SA329327

PATIENT
  Age: 64 Year
  Sex: Female

DRUGS (4)
  1. DUPIXENT [Suspect]
     Active Substance: DUPILUMAB
     Indication: Asthma
     Dosage: 300 MG, QOW
     Route: 058
     Dates: start: 201911
  2. TRIKAFTA [Concomitant]
     Active Substance: ELEXACAFTOR\IVACAFTOR\TEZACAFTOR
     Indication: Cytogenetic abnormality
     Dosage: UNK(2 ORANGE TABLETS IN THE AM AND1 LIGHT BLUE TABLET IN THE PM[100/50/75/150MG])
     Route: 048
  3. TRIKAFTA [Concomitant]
     Active Substance: ELEXACAFTOR\IVACAFTOR\TEZACAFTOR
     Indication: Metabolic disorder
  4. TRIKAFTA [Concomitant]
     Active Substance: ELEXACAFTOR\IVACAFTOR\TEZACAFTOR
     Indication: Cystic fibrosis

REACTIONS (4)
  - Pneumonia pseudomonal [Unknown]
  - Blood potassium decreased [Unknown]
  - Diarrhoea [Unknown]
  - Asthma [Unknown]

NARRATIVE: CASE EVENT DATE: 20251001
